FAERS Safety Report 6361088-4 (Version None)
Quarter: 2009Q3

REPORT INFORMATION
  Report Type: 
  Country: None (occurrence: None)
  Receive Date: 20090918
  Receipt Date: 20090910
  Transmission Date: 20100115
  Serious: Yes (Death, Life-Threatening, Hospitalization)
  Sender: FDA-Public Use
  Company Number: CA-BAYER-200932449NA

PATIENT
  Age: 62 Year
  Sex: Female
  Weight: 81 kg

DRUGS (8)
  1. SORAFENIB [Suspect]
     Indication: UTERINE CANCER
     Dosage: TOTAL DAILY DOSE: 400 MG  UNIT DOSE: 200 MG
     Route: 048
     Dates: start: 20090810, end: 20090828
  2. IMODIUM [Concomitant]
     Indication: DIARRHOEA
     Dates: start: 20090823, end: 20090829
  3. KYTRIL [Concomitant]
     Indication: PROPHYLAXIS
     Dates: start: 20090817, end: 20090828
  4. TYLENOL W/ CODEINE NO. 2 [Concomitant]
     Indication: PAIN
     Dates: start: 20090705
  5. MORPHINE [Concomitant]
  6. GRAVOL TAB [Concomitant]
     Route: 042
  7. METOCLOPRAMIDE [Concomitant]
  8. TEMAZEPAM [Concomitant]

REACTIONS (6)
  - DEHYDRATION [None]
  - DIARRHOEA [None]
  - INTESTINAL OBSTRUCTION [None]
  - INTESTINAL PERFORATION [None]
  - PAIN [None]
  - PYREXIA [None]
